FAERS Safety Report 9510724 (Version 2)
Quarter: 2013Q3

REPORT INFORMATION
  Report Type: Spontaneous
  Country: US (occurrence: US)
  Receive Date: 20130909
  Receipt Date: 20130909
  Transmission Date: 20140515
  Serious: No
  Sender: FDA-Public Use
  Company Number: US-B.I. PHARMACEUTICALS,INC./RIDGEFIELD-2007-BP-23769BP

PATIENT
  Sex: Female

DRUGS (6)
  1. SPIRIVA HANDIHALER [Suspect]
     Indication: CHRONIC OBSTRUCTIVE PULMONARY DISEASE
     Dosage: 18 MCG
     Route: 055
     Dates: start: 2007, end: 2007
  2. SPIRIVA HANDIHALER [Suspect]
     Indication: BRONCHITIS CHRONIC
  3. XANAX [Concomitant]
     Indication: ANXIETY
  4. ALBUTEROL [Concomitant]
     Indication: CHRONIC OBSTRUCTIVE PULMONARY DISEASE
  5. CALAN [Concomitant]
     Indication: HYPERTENSION
  6. AMBIEN [Concomitant]
     Indication: INSOMNIA

REACTIONS (2)
  - Constipation [Recovered/Resolved]
  - Frequent bowel movements [Not Recovered/Not Resolved]
